FAERS Safety Report 8433504-5 (Version None)
Quarter: 2012Q2

REPORT INFORMATION
  Report Type: 
  Country: None (occurrence: None)
  Receive Date: 20120323
  Receipt Date: 20110908
  Transmission Date: 20120825
  Serious: Yes (Other)
  Sender: FDA-Public Use
  Company Number: 163-21880-11071897

PATIENT
  Age: 68 Year
  Sex: Male

DRUGS (15)
  1. REVLIMID [Suspect]
     Indication: MULTIPLE MYELOMA
     Dosage: 15 MG, 1 IN 1 D, PO; 10 MG, FOR 21 DAYS AND 7 DAYS OFF, PO
     Route: 048
     Dates: start: 20110309
  2. REVLIMID [Suspect]
     Indication: MULTIPLE MYELOMA
     Dosage: 15 MG, 1 IN 1 D, PO; 10 MG, FOR 21 DAYS AND 7 DAYS OFF, PO
     Route: 048
     Dates: start: 20110401, end: 20110802
  3. OMEGA-3 (OMEGA-3 TRIGLYCERIDES) [Concomitant]
  4. SPIRONOLACTONE [Concomitant]
  5. FERROUS SULFATE TAB [Concomitant]
  6. FOLIC ACID [Concomitant]
  7. DECADRON [Concomitant]
  8. PREDNISONE TAB [Concomitant]
  9. ALBUTEROL [Concomitant]
  10. FUROSEMIDE [Concomitant]
  11. METOPROLOL TARTRATE [Concomitant]
  12. MELPHALAN HYDROCHLORIDE [Concomitant]
  13. ASPIRIN [Concomitant]
  14. QVAR (BECLOMETADONE DIPROPIONATE) [Concomitant]
  15. LEVOTHYROXINE SODIUM [Concomitant]

REACTIONS (1)
  - ANAEMIA [None]
